FAERS Safety Report 25730153 (Version 2)
Quarter: 2025Q4

REPORT INFORMATION
  Report Type: Spontaneous
  Country: US (occurrence: US)
  Receive Date: 20250827
  Receipt Date: 20251010
  Transmission Date: 20260117
  Serious: No
  Sender: TOLMAR
  Company Number: US-Tolmar-TLM-2025-04992

PATIENT

DRUGS (3)
  1. ELIGARD [Suspect]
     Active Substance: LEUPROLIDE ACETATE
     Indication: Prostate cancer
     Dosage: DOSE NOT ADMINISTERED?EXPIRATION DATES: UNK; NOV-2026; OCT-2026?SERIAL NUMBER 1237892533157, NDC?NUM
     Route: 065
  2. ELIGARD [Suspect]
     Active Substance: LEUPROLIDE ACETATE
     Dosage: REPLACEMENT DOSE
     Route: 065
  3. DEVICE [Suspect]
     Active Substance: DEVICE
     Indication: Prostate cancer
     Dosage: EXPIRATION DATES: UNK; NOV-2026; OCT-2026?SERIAL NUMBER 1237892533157, NDC?NUMBER 62935-227-10, GTIN

REACTIONS (3)
  - Intercepted product preparation error [Unknown]
  - Product storage error [Unknown]
  - Wrong technique in product usage process [Unknown]
